FAERS Safety Report 17957245 (Version 12)
Quarter: 2023Q1

REPORT INFORMATION
  Report Type: Spontaneous
  Country: JP (occurrence: JP)
  Receive Date: 20200629
  Receipt Date: 20230215
  Transmission Date: 20230418
  Serious: Yes (Death, Life-Threatening, Hospitalization, Other)
  Sender: FDA-Public Use
  Company Number: JP-BRISTOL-MYERS SQUIBB COMPANY-BMS-2020-050231

PATIENT
  Age: 61 Year
  Sex: Male

DRUGS (4)
  1. OPDIVO [Suspect]
     Active Substance: NIVOLUMAB
     Indication: Head and neck cancer
     Dosage: 240 MILLIGRAM, Q2WK
     Route: 042
     Dates: start: 20191107, end: 20200206
  2. PACLITAXEL [Suspect]
     Active Substance: PACLITAXEL
     Indication: Head and neck cancer
     Dosage: 80 MG/M2, QW
  3. CETUXIMAB [Suspect]
     Active Substance: CETUXIMAB
     Indication: Head and neck cancer
     Dosage: 400 MG/M2, QW
  4. CETUXIMAB [Suspect]
     Active Substance: CETUXIMAB
     Dosage: 250 MG/M2, QW

REACTIONS (6)
  - Protein-losing gastroenteropathy [Fatal]
  - Malignant neoplasm progression [Fatal]
  - Upper gastrointestinal perforation [Fatal]
  - Gastritis [Fatal]
  - Renal impairment [Fatal]
  - Shock [Unknown]

NARRATIVE: CASE EVENT DATE: 20200413
